FAERS Safety Report 13424267 (Version 3)
Quarter: 2017Q2

REPORT INFORMATION
  Report Type: Spontaneous
  Country: US (occurrence: US)
  Receive Date: 20170410
  Receipt Date: 20170518
  Transmission Date: 20170830
  Serious: Yes (Death, Hospitalization)
  Sender: FDA-Public Use
  Company Number: US-INTERPRAG-PM-OCA2017-00268

PATIENT

DRUGS (1)
  1. OCALIVA [Suspect]
     Active Substance: OBETICHOLIC ACID
     Indication: BILIARY CIRRHOSIS PRIMARY
     Dosage: 5 MG, QD
     Route: 048
     Dates: start: 20170218, end: 20170320

REACTIONS (10)
  - Anaemia [Unknown]
  - Metabolic acidosis [Unknown]
  - Hepatic failure [Fatal]
  - Coagulopathy [Unknown]
  - Pulmonary oedema [Unknown]
  - Hepatorenal syndrome [Unknown]
  - Musculoskeletal pain [Unknown]
  - Sepsis [Unknown]
  - Pain in extremity [Unknown]
  - Back pain [Unknown]

NARRATIVE: CASE EVENT DATE: 20170318
